FAERS Safety Report 6978580-1 (Version None)
Quarter: 2010Q3

REPORT INFORMATION
  Report Type: 
  Country: None (occurrence: None)
  Receive Date: 20100913
  Receipt Date: 20100908
  Transmission Date: 20110219
  Serious: Yes (Hospitalization)
  Sender: FDA-Public Use
  Company Number: US-EISAI INC.-E2083-00042-SPO-US

PATIENT
  Age: 43 Year
  Sex: Female
  Weight: 73 kg

DRUGS (5)
  1. LUSEDRA [Suspect]
     Indication: SEDATION
     Route: 042
     Dates: start: 20100813, end: 20100813
  2. NEURONTIN [Concomitant]
  3. CEFAZOLIN [Concomitant]
     Indication: PROPHYLAXIS
     Dates: start: 20100813, end: 20100813
  4. PROPOFOL [Concomitant]
     Indication: SEDATION
     Route: 042
     Dates: start: 20100813, end: 20100813
  5. FENTANYL CITRATE [Concomitant]
     Indication: SEDATION
     Route: 042
     Dates: start: 20100813, end: 20100813

REACTIONS (1)
  - CONVULSION [None]
